FAERS Safety Report 7952207-4 (Version None)
Quarter: 2011Q4

REPORT INFORMATION
  Report Type: 
  Country: None (occurrence: None)
  Receive Date: 20111201
  Receipt Date: 20111121
  Transmission Date: 20120403
  Serious: Yes (Other)
  Sender: FDA-Public Use
  Company Number: JP-UCBSA-046272

PATIENT

DRUGS (1)
  1. KEPPRA [Suspect]
     Dosage: 500 MG
     Route: 048

REACTIONS (3)
  - BLOOD PRESSURE DECREASED [None]
  - RESPIRATORY DEPRESSION [None]
  - SHOCK [None]
